FAERS Safety Report 7212707-1 (Version None)
Quarter: 2011Q1

REPORT INFORMATION
  Report Type: 
  Country: None (occurrence: None)
  Receive Date: 20110106
  Receipt Date: 20101230
  Transmission Date: 20110831
  Serious: Yes (Hospitalization)
  Sender: FDA-Public Use
  Company Number: US-JNJFOC-20100308375

PATIENT
  Sex: Female
  Weight: 8.29 kg

DRUGS (13)
  1. CLOTRIMAZOLE [Concomitant]
  2. ACETAMINOPHEN [Concomitant]
  3. GRANULOCYTE MACROPHAGE COLONY STIM FACTOR [Concomitant]
  4. METHOTREXATE [Concomitant]
  5. LEUKINE [Concomitant]
  6. MUPIROCIN [Concomitant]
  7. ANTIBIOTICS [Concomitant]
     Indication: INFLAMMATORY BOWEL DISEASE
  8. FOLATE [Concomitant]
  9. ELIDEL [Concomitant]
  10. INFLIXIMAB [Suspect]
     Indication: INFLAMMATORY BOWEL DISEASE
     Route: 042
  11. MICONAZOLE [Concomitant]
  12. IRON [Concomitant]
  13. PREVACID [Concomitant]

REACTIONS (2)
  - INFLAMMATORY BOWEL DISEASE [None]
  - PYREXIA [None]
